FAERS Safety Report 6113846-9 (Version None)
Quarter: 2009Q1

REPORT INFORMATION
  Report Type: 
  Country: None (occurrence: None)
  Receive Date: 20090312
  Receipt Date: 20090306
  Transmission Date: 20090719
  Serious: Yes (Hospitalization, Disabling)
  Sender: FDA-Public Use
  Company Number: US-ABBOTT-08P-163-0461424-00

PATIENT
  Sex: Female

DRUGS (14)
  1. HUMIRA [Suspect]
     Indication: CROHN'S DISEASE
     Route: 050
     Dates: start: 20071101
  2. OXYCONTIN [Concomitant]
     Indication: PAIN
     Route: 048
  3. CYMBALTA [Concomitant]
     Indication: DEPRESSION
     Route: 048
  4. LYRICA [Concomitant]
     Indication: PAIN
     Route: 048
  5. ELAVIL [Concomitant]
     Indication: DEPRESSION
     Route: 048
  6. PRILOSEC [Concomitant]
     Indication: GASTRIC DISORDER
     Route: 048
  7. KLOR-CON [Concomitant]
     Indication: VITAMIN SUPPLEMENTATION
     Route: 048
  8. CALCIUM [Concomitant]
     Indication: MINERAL SUPPLEMENTATION
     Route: 048
  9. IRON [Concomitant]
     Indication: MINERAL SUPPLEMENTATION
     Route: 048
  10. MULTI-VITAMIN [Concomitant]
     Indication: VITAMIN SUPPLEMENTATION
     Route: 048
  11. ACTONEL [Concomitant]
     Indication: OSTEOPOROSIS PROPHYLAXIS
     Route: 048
  12. LORCET-HD [Concomitant]
     Indication: PAIN
     Route: 048
  13. XANAX [Concomitant]
     Indication: ANXIETY
     Route: 048
  14. PREDNISONE [Concomitant]
     Indication: INFLAMMATION
     Route: 048

REACTIONS (19)
  - ACCIDENTAL EXPOSURE [None]
  - COMPLEX REGIONAL PAIN SYNDROME [None]
  - DIABETIC ULCER [None]
  - DRUG ADMINISTRATION ERROR [None]
  - FEMUR FRACTURE [None]
  - FOOT FRACTURE [None]
  - HEPATIC ENZYME INCREASED [None]
  - IMPAIRED HEALING [None]
  - INCORRECT DOSE ADMINISTERED [None]
  - INJECTION SITE CELLULITIS [None]
  - INJECTION SITE INFECTION [None]
  - INTRACRANIAL HAEMATOMA [None]
  - LARGE INTESTINAL ULCER [None]
  - LIMB INJURY [None]
  - PAIN [None]
  - POOR PERIPHERAL CIRCULATION [None]
  - ROAD TRAFFIC ACCIDENT [None]
  - SKIN DISCOLOURATION [None]
  - TYPE 1 DIABETES MELLITUS [None]
